FAERS Safety Report 7000547-8 (Version None)
Quarter: 2010Q3

REPORT INFORMATION
  Report Type: 
  Country: None (occurrence: None)
  Receive Date: 20100920
  Receipt Date: 20091001
  Transmission Date: 20110219
  Serious: No
  Sender: FDA-Public Use
  Company Number: US-ASTRAZENECA-2009SE17135

PATIENT
  Sex: Male
  Weight: 99.8 kg

DRUGS (6)
  1. SEROQUEL XR [Suspect]
     Route: 048
  2. SEROQUEL XR [Suspect]
     Route: 048
  3. ATENENOL [Concomitant]
     Route: 048
  4. ANALAPRIL [Concomitant]
     Route: 048
  5. GANUMET [Concomitant]
     Route: 048
  6. GLYPICIDE [Concomitant]
     Route: 065

REACTIONS (6)
  - BLOOD PRESSURE DECREASED [None]
  - DIABETES MELLITUS [None]
  - HALLUCINATION, AUDITORY [None]
  - HYPERHIDROSIS [None]
  - PANIC ATTACK [None]
  - WEIGHT INCREASED [None]
